FAERS Safety Report 18315189 (Version 20)
Quarter: 2024Q4

REPORT INFORMATION
  Report Type: Report from Study
  Country: US (occurrence: US)
  Receive Date: 20200926
  Receipt Date: 20241227
  Transmission Date: 20250115
  Serious: Yes (Other)
  Sender: TAKEDA
  Company Number: US-SHIRE-US202031248

PATIENT
  Age: 61 Year
  Sex: Female
  Weight: 84 kg

DRUGS (31)
  1. HUMAN IMMUNOGLOBULIN G [Suspect]
     Active Substance: HUMAN IMMUNOGLOBULIN G
     Indication: Immunodeficiency common variable
     Dosage: UNK
  2. HUMAN IMMUNOGLOBULIN G [Suspect]
     Active Substance: HUMAN IMMUNOGLOBULIN G
     Dosage: 13 GRAM, 1/WEEK
     Dates: start: 20170310
  3. SOTROVIMAB [Suspect]
     Active Substance: SOTROVIMAB
     Indication: Product used for unknown indication
     Dosage: UNK
  4. ACETAMINOPHEN [Concomitant]
     Active Substance: ACETAMINOPHEN
     Dosage: UNK
  5. DIPHENHYDRAMINE [Concomitant]
     Active Substance: DIPHENHYDRAMINE
     Dosage: UNK
  6. LIDOCAINE [Concomitant]
     Active Substance: LIDOCAINE
     Dosage: UNK
  7. LORATADINE [Concomitant]
     Active Substance: LORATADINE
     Dosage: UNK
  8. EPINEPHRINE [Concomitant]
     Active Substance: EPINEPHRINE
     Dosage: UNK
  9. MARINOL [Concomitant]
     Active Substance: DRONABINOL
     Dosage: UNK
  10. MEDROL [Concomitant]
     Active Substance: METHYLPREDNISOLONE
     Dosage: UNK
  11. XIFAXAN [Concomitant]
     Active Substance: RIFAXIMIN
     Dosage: UNK
  12. CRESTOR [Concomitant]
     Active Substance: ROSUVASTATIN CALCIUM
     Dosage: UNK
  13. BUDESONIDE [Concomitant]
     Active Substance: BUDESONIDE
     Dosage: UNK
  14. ALBUTEROL SULFATE [Concomitant]
     Active Substance: ALBUTEROL SULFATE
     Dosage: UNK
  15. SINGULAIR [Concomitant]
     Active Substance: MONTELUKAST SODIUM
     Dosage: UNK
  16. ESTRING [Concomitant]
     Active Substance: ESTRADIOL
     Dosage: UNK
  17. ASPIRIN [Concomitant]
     Active Substance: ASPIRIN
     Dosage: UNK
  18. VITAMIN E [Concomitant]
     Active Substance: .ALPHA.-TOCOPHEROL
     Dosage: UNK
  19. VITAMIN C [Concomitant]
     Active Substance: ASCORBIC ACID
     Dosage: UNK
  20. MAGNESIUM [Concomitant]
     Active Substance: MAGNESIUM
     Dosage: UNK
  21. Glucosamine + chondoritin [Concomitant]
     Dosage: UNK
  22. VITAMIN D3 [Concomitant]
     Active Substance: CHOLECALCIFEROL
     Dosage: UNK
  23. DIETARY SUPPLEMENT\RESVERATROL [Concomitant]
     Active Substance: DIETARY SUPPLEMENT\RESVERATROL
     Dosage: UNK
  24. BUPROPION [Concomitant]
     Active Substance: BUPROPION
     Dosage: UNK
  25. OMEGA 3 COMPLETE [Concomitant]
     Dosage: UNK
  26. DIETARY SUPPLEMENT [Concomitant]
     Active Substance: DIETARY SUPPLEMENT
     Dosage: UNK
  27. CELADRIN [Concomitant]
     Active Substance: MENTHOL
     Dosage: UNK
  28. PREMARIN [Concomitant]
     Active Substance: ESTROGENS, CONJUGATED
     Dosage: UNK
  29. MELATONIN [Concomitant]
     Active Substance: MELATONIN
     Dosage: UNK
  30. UC II [Concomitant]
     Dosage: UNK
  31. Omega [Concomitant]
     Dosage: UNK

REACTIONS (14)
  - COVID-19 [Unknown]
  - Skin irritation [Unknown]
  - Bacterial infection [Unknown]
  - Sinusitis [Recovering/Resolving]
  - Tooth infection [Unknown]
  - Scar [Unknown]
  - Discomfort [Unknown]
  - Tooth abscess [Unknown]
  - Abdominal discomfort [Unknown]
  - Infusion site mass [Unknown]
  - Influenza like illness [Unknown]
  - Infusion site bruising [Unknown]
  - Fatigue [Unknown]
  - Pruritus [Unknown]

NARRATIVE: CASE EVENT DATE: 20201103
